FAERS Safety Report 9363395 (Version 5)
Quarter: 2014Q3

REPORT INFORMATION
  Report Type: Spontaneous
  Country: US (occurrence: US)
  Receive Date: 20130624
  Receipt Date: 20140814
  Transmission Date: 20150326
  Serious: Yes (Hospitalization)
  Sender: FDA-Public Use
  Company Number: US-AMGEN-USASP2013043692

PATIENT
  Age: 77 Year
  Sex: Female

DRUGS (8)
  1. VITAMIN D                          /00107901/ [Concomitant]
     Active Substance: ERGOCALCIFEROL
  2. OMEGA 18/12 FISH OIL [Concomitant]
  3. VITAMINS                           /00067501/ [Concomitant]
  4. VITAMINS WITH MINERALS [Concomitant]
     Active Substance: MINERALS\VITAMINS
  5. OMEGA 3 FISH OIL [Concomitant]
     Active Substance: FISH OIL\OMEGA-3 FATTY ACIDS
  6. PROLIA [Suspect]
     Active Substance: DENOSUMAB
     Indication: OSTEOPOROSIS POSTMENOPAUSAL
     Dosage: UNK
     Route: 065
  7. CENTRUM SILVER                     /02363801/ [Concomitant]
     Active Substance: VITAMINS
  8. CALCIUM WITH VITAMIN D             /00944201/ [Concomitant]
     Active Substance: CALCIUM\VITAMIN D

REACTIONS (24)
  - Female genital tract fistula [Recovered/Resolved]
  - Ear pain [Unknown]
  - Back pain [Recovered/Resolved]
  - Diverticulitis [Recovered/Resolved]
  - Pubic pain [Recovered/Resolved]
  - Dysgeusia [Recovered/Resolved]
  - Throat irritation [Recovered/Resolved]
  - Chest pain [Unknown]
  - Neck pain [Unknown]
  - Gastric disorder [Unknown]
  - Pain in extremity [Unknown]
  - Constipation [Recovered/Resolved]
  - Pain in jaw [Unknown]
  - Vomiting [Recovered/Resolved]
  - Hypotension [Unknown]
  - Asthenia [Unknown]
  - Myalgia [Recovering/Resolving]
  - Dyspepsia [Recovered/Resolved]
  - Stress [Unknown]
  - Muscular weakness [Unknown]
  - Musculoskeletal pain [Unknown]
  - Arthritis [Recovered/Resolved]
  - Eructation [Unknown]
  - Headache [Unknown]

NARRATIVE: CASE EVENT DATE: 20130512
